FAERS Safety Report 6388269-8 (Version None)
Quarter: 2009Q4

REPORT INFORMATION
  Report Type: 
  Country: None (occurrence: None)
  Receive Date: 20091005
  Receipt Date: 20090928
  Transmission Date: 20100525
  Serious: Yes (Other)
  Sender: FDA-Public Use
  Company Number: DE-JNJFOC-20091000125

PATIENT
  Age: 3 Decade
  Sex: Female

DRUGS (1)
  1. TOPAMAX MIGRAENE [Suspect]
     Indication: DRUG USE FOR UNKNOWN INDICATION
     Dosage: PROBABLY 50 MG DAILY
     Route: 048

REACTIONS (1)
  - ENTERITIS [None]
